FAERS Safety Report 13017288 (Version 1)
Quarter: 2016Q4

REPORT INFORMATION
  Report Type: Spontaneous
  Country: FR (occurrence: FR)
  Receive Date: 20161212
  Receipt Date: 20161212
  Transmission Date: 20170207
  Serious: Yes (Hospitalization, Other)
  Sender: FDA-Public Use
  Company Number: FR-PFIZER INC-2016567107

PATIENT
  Age: 91 Year
  Sex: Female

DRUGS (11)
  1. LASILIX /00032601/ [Concomitant]
     Active Substance: FUROSEMIDE
  2. PLAVIX [Concomitant]
     Active Substance: CLOPIDOGREL BISULFATE
  3. HUMALOG [Concomitant]
     Active Substance: INSULIN LISPRO
  4. DOLIPRANE [Concomitant]
     Active Substance: ACETAMINOPHEN
  5. LYRICA [Suspect]
     Active Substance: PREGABALIN
     Indication: VENOUS ULCER PAIN
     Dosage: 50 MG, 2X/DAY
     Route: 048
     Dates: start: 20161013, end: 20161020
  6. PARIET [Concomitant]
     Active Substance: RABEPRAZOLE SODIUM
  7. COTAREG [Concomitant]
     Active Substance: HYDROCHLOROTHIAZIDE\VALSARTAN
  8. SOTALEX [Concomitant]
     Active Substance: SOTALOL
  9. JANUVIA [Concomitant]
     Active Substance: SITAGLIPTIN PHOSPHATE
  10. LANTUS [Concomitant]
     Active Substance: INSULIN GLARGINE
  11. VERSATIS [Concomitant]
     Active Substance: LIDOCAINE

REACTIONS (4)
  - Confusional state [Recovered/Resolved]
  - Product use issue [Unknown]
  - Motor dysfunction [Unknown]
  - Ataxia [Recovered/Resolved]

NARRATIVE: CASE EVENT DATE: 201610
